FAERS Safety Report 20020612 (Version 2)
Quarter: 2022Q2

REPORT INFORMATION
  Report Type: Spontaneous
  Country: NL (occurrence: NL)
  Receive Date: 20211101
  Receipt Date: 20220505
  Transmission Date: 20220721
  Serious: Yes (Hospitalization)
  Sender: FDA-Public Use
  Company Number: NL-NOVARTISPH-NVSC2021NL245781

PATIENT
  Sex: Male

DRUGS (4)
  1. PREDNISONE [Suspect]
     Active Substance: PREDNISONE
     Indication: Product used for unknown indication
     Dosage: UNK
     Route: 065
  2. CARBIDOPA\LEVODOPA [Suspect]
     Active Substance: CARBIDOPA\LEVODOPA
     Indication: Parkinson^s disease
     Dosage: MD: 12.0 ML; CD: 3.7 ML/H; ED: 3.0 ML
     Route: 065
  3. CARBIDOPA\LEVODOPA [Suspect]
     Active Substance: CARBIDOPA\LEVODOPA
     Dosage: MD: 12.0ML, CD: 3.6ML/H, ED: 3.0ML
     Route: 065
  4. CARBIDOPA\LEVODOPA [Suspect]
     Active Substance: CARBIDOPA\LEVODOPA
     Dosage: UNK
     Route: 050
     Dates: start: 20200803

REACTIONS (25)
  - Peripheral swelling [Not Recovered/Not Resolved]
  - Influenza [Recovering/Resolving]
  - Inflammatory marker increased [Recovering/Resolving]
  - Nocturia [Unknown]
  - Muscle twitching [Recovering/Resolving]
  - Appetite disorder [Not Recovered/Not Resolved]
  - Mobility decreased [Not Recovered/Not Resolved]
  - Parkinson^s disease [Not Recovered/Not Resolved]
  - Restlessness [Unknown]
  - Balance disorder [Unknown]
  - Fall [Not Recovered/Not Resolved]
  - Abnormal dreams [Unknown]
  - Urinary incontinence [Not Recovered/Not Resolved]
  - On and off phenomenon [Not Recovered/Not Resolved]
  - Memory impairment [Not Recovered/Not Resolved]
  - Weight decreased [Not Recovered/Not Resolved]
  - Knee deformity [Not Recovered/Not Resolved]
  - Fibroma [Not Recovered/Not Resolved]
  - Muscle rigidity [Unknown]
  - Vertigo [Not Recovered/Not Resolved]
  - Unevaluable event [Not Recovered/Not Resolved]
  - Memory impairment [Not Recovered/Not Resolved]
  - Dyskinesia [Not Recovered/Not Resolved]
  - Hypertension [Not Recovered/Not Resolved]
  - Diabetes mellitus [Unknown]

NARRATIVE: CASE EVENT DATE: 20210101
